FAERS Safety Report 15111667 (Version 1)
Quarter: 2018Q3

REPORT INFORMATION
  Report Type: Report from Study
  Country: DE (occurrence: DE)
  Receive Date: 20180705
  Receipt Date: 20180705
  Transmission Date: 20181010
  Serious: Yes (Congenital Anomaly)
  Sender: FDA-Public Use
  Company Number: DE-TEVA-2018-DE-919881

PATIENT

DRUGS (15)
  1. SIMVASTATIN. [Concomitant]
     Active Substance: SIMVASTATIN
     Dosage: EXPOSURE DURATION: 0?14 WEEKS
     Route: 064
  2. ACETYLSALICYLIC ACID [Concomitant]
     Active Substance: ASPIRIN
     Dosage: EXPOSURE DURATION: 0?14 WEEKS
     Route: 064
  3. PANTOPRAZOLE [Concomitant]
     Active Substance: PANTOPRAZOLE
     Dosage: EXPOSURE DURATION: 0?14 WEEKS
     Route: 064
  4. HYDROXYCHLOROQUINE [Concomitant]
     Active Substance: HYDROXYCHLOROQUINE
     Dosage: EXPOSURE DURATION: 0?14 WEEKS
     Route: 064
  5. RAMIPRIL. [Suspect]
     Active Substance: RAMIPRIL
     Indication: HYPERTENSION
     Dosage: EXPOSURE DURATION: 0?13+6 WEEKS
     Route: 064
  6. TORASEMIDE [Concomitant]
     Active Substance: TORSEMIDE
     Dosage: EXPOSURE DURATION: 0?14 WEEKS
     Route: 064
  7. ENOXAPARIN [Concomitant]
     Active Substance: ENOXAPARIN
     Dosage: EXPOSURE DURATION: 0?14 WEEKS
     Route: 064
  8. TACROLIMUS. [Concomitant]
     Active Substance: TACROLIMUS
     Dosage: EXPOSURE DURATION: 0?14 WEEKS
     Route: 064
  9. EZETIMIBE. [Concomitant]
     Active Substance: EZETIMIBE
     Dosage: EXPOSURE DURATION: 0?14 WEEKS
     Route: 064
  10. METAMIZOLE [Concomitant]
     Active Substance: METAMIZOLE
     Dosage: EXPOSURE DURATION: 0?14 WEEKS
     Route: 064
  11. RIVAROXABAN [Concomitant]
     Active Substance: RIVAROXABAN
     Dosage: EXPOSURE DURATION: 0?5 WEEKS
     Route: 064
  12. NICOTINE. [Concomitant]
     Active Substance: NICOTINE
     Dosage: EXPOSURE DURATION: 0?14 WEEKS
     Route: 064
  13. ALISKIREN [Concomitant]
     Active Substance: ALISKIREN
     Dosage: EXPOSURE DURATION: 0?5 WEEKS
     Route: 064
  14. PREDNISOLONE. [Concomitant]
     Active Substance: PREDNISOLONE
     Dosage: EXPOSURE DURATION: 0?14 WEEKS
     Route: 064
  15. SALBUTAMOL [Concomitant]
     Active Substance: ALBUTEROL
     Dosage: EXPOSURE DURATION: 0?14 WEEKS
     Route: 064

REACTIONS (3)
  - Ventricular septal defect [Unknown]
  - Truncus arteriosus persistent [Unknown]
  - Foetal exposure during pregnancy [Unknown]
